FAERS Safety Report 20581862 (Version 1)
Quarter: 2022Q1

REPORT INFORMATION
  Report Type: Spontaneous
  Country: CN (occurrence: None)
  Receive Date: 20220311
  Receipt Date: 20220311
  Transmission Date: 20220423
  Serious: Yes (Other)
  Sender: FDA-Public Use
  Company Number: 2022A087791

PATIENT
  Age: 52 Year
  Sex: Female
  Weight: 51 kg

DRUGS (1)
  1. IMFINZI [Suspect]
     Active Substance: DURVALUMAB
     Indication: Non-small cell lung cancer stage III
     Dosage: 500MG/CYCLE
     Route: 042
     Dates: start: 20210927, end: 20220117

REACTIONS (3)
  - Metastases to lymph nodes [Unknown]
  - Metastases to central nervous system [Unknown]
  - Hyperthyroidism [Unknown]

NARRATIVE: CASE EVENT DATE: 20220101
